FAERS Safety Report 6177784-8 (Version None)
Quarter: 2009Q2

REPORT INFORMATION
  Report Type: 
  Country: None (occurrence: None)
  Receive Date: 20090504
  Receipt Date: 20090106
  Transmission Date: 20091009
  Serious: No
  Sender: FDA-Public Use
  Company Number: US-ALEXION-A200800446

PATIENT
  Sex: Male
  Weight: 82.54 kg

DRUGS (13)
  1. SOLIRIS [Suspect]
     Indication: PAROXYSMAL NOCTURNAL HAEMOGLOBINURIA
     Dosage: 600 MG, QW
     Route: 042
     Dates: start: 20070829, end: 20070919
  2. SOLIRIS [Suspect]
     Dosage: 900 MG, Q2W
     Route: 042
     Dates: start: 20070101
  3. FUROSEMIDE [Concomitant]
     Dosage: 40 MG, BIW
     Route: 048
  4. LANTUS [Concomitant]
     Indication: DIABETES MELLITUS
     Dosage: 44 UT, QD
  5. HUMALOG [Concomitant]
     Indication: DIABETES MELLITUS
     Dosage: 18 UT, BID
  6. HUMALOG [Concomitant]
     Dosage: 20 UT, QD
  7. CARDIA [Concomitant]
     Dosage: 240 MG, QD
     Route: 048
  8. OMEPRAZOLE [Concomitant]
     Indication: GASTROOESOPHAGEAL REFLUX PROPHYLAXIS
     Dosage: 20 MG, QD
     Route: 048
  9. PREDNISONE [Concomitant]
     Indication: PAROXYSMAL NOCTURNAL HAEMOGLOBINURIA
     Dosage: 10 MG, QD
     Route: 048
     Dates: end: 20081221
  10. PREDNISONE [Concomitant]
     Dosage: 20 MG, QD
     Dates: start: 20081222
  11. HEMATIN FE [Concomitant]
     Indication: MINERAL SUPPLEMENTATION
     Dosage: UNK
     Route: 048
  12. ZOLPIDEM TARTRATE [Concomitant]
     Indication: SLEEP DISORDER
     Dosage: 10 MG, QD
     Route: 048
  13. ARANESP [Concomitant]
     Dosage: UNK
     Dates: start: 20081219

REACTIONS (6)
  - DIARRHOEA [None]
  - HAEMOGLOBIN DECREASED [None]
  - INFLUENZA [None]
  - PRURITUS [None]
  - URINE COLOUR ABNORMAL [None]
  - VOMITING [None]
